FAERS Safety Report 5283787-8 (Version None)
Quarter: 2007Q1

REPORT INFORMATION
  Report Type: 
  Country: None (occurrence: None)
  Receive Date: 20061226
  Receipt Date: 20060726
  Transmission Date: 20070707
  Serious: Yes (Other)
  Sender: FDA-Public Use
  Company Number: 2005S1000315

PATIENT
  Age: 33 Year
  Sex: Male

DRUGS (3)
  1. SORIATANE [Suspect]
     Indication: ICHTHYOSIS
     Dosage: SEE IMAGE
     Route: 048
     Dates: start: 19920101, end: 19960101
  2. SORIATANE [Suspect]
     Indication: ICHTHYOSIS
     Dosage: SEE IMAGE
     Route: 048
     Dates: start: 19960101, end: 20051001
  3. TIGASON [Concomitant]

REACTIONS (1)
  - NIGHT BLINDNESS [None]
